FAERS Safety Report 6236132-5 (Version None)
Quarter: 2009Q2

REPORT INFORMATION
  Report Type: 
  Country: None (occurrence: None)
  Receive Date: 20090619
  Receipt Date: 20090608
  Transmission Date: 20091009
  Serious: Yes (Other)
  Sender: FDA-Public Use
  Company Number: GB-PFIZER INC-2009223673

PATIENT
  Age: 51 Year

DRUGS (5)
  1. GENOTROPIN [Suspect]
     Indication: GROWTH HORMONE DEFICIENCY
     Dosage: 0.5 MG, UNK
     Dates: start: 20090313
  2. DESMOPRESSIN ACETATE [Concomitant]
     Indication: DIABETES INSIPIDUS
     Dosage: UNK
     Route: 045
     Dates: start: 19940101
  3. FEMOSTON CONTI [Concomitant]
     Indication: HORMONE REPLACEMENT THERAPY
     Dosage: 1 DF, 1X/DAY
     Route: 048
     Dates: start: 19970101
  4. HYDROCORTISONE [Concomitant]
     Indication: HYPOTHALAMO-PITUITARY DISORDER
     Dosage: 225 MG, UNK
     Route: 048
     Dates: start: 19720101
  5. LEVOTHYROXINE [Concomitant]
     Indication: HYPOTHALAMO-PITUITARY DISORDER
     Dosage: 200 UG, 1X/DAY
     Route: 048
     Dates: start: 19720101

REACTIONS (1)
  - CELLULITIS [None]
